FAERS Safety Report 8417950-1 (Version None)
Quarter: 2012Q2

REPORT INFORMATION
  Report Type: 
  Country: None (occurrence: None)
  Receive Date: 20120601
  Receipt Date: 20120601
  Transmission Date: 20120825
  Serious: No
  Sender: FDA-Public Use
  Company Number: None

PATIENT
  Age: 69 Year
  Sex: Male
  Weight: 112.4921 kg

DRUGS (2)
  1. ALLOPURINOL [Suspect]
     Indication: INTESTINAL HAEMORRHAGE
     Dosage: 300 MG QD ORAL
     Route: 048
     Dates: start: 20120522
  2. ALLOPURINOL [Suspect]
     Indication: GASTROINTESTINAL PAIN
     Dosage: 300 MG QD ORAL
     Route: 048
     Dates: start: 20120522

REACTIONS (3)
  - GASTROINTESTINAL PAIN [None]
  - INTESTINAL HAEMORRHAGE [None]
  - PRODUCT SUBSTITUTION ISSUE [None]
